FAERS Safety Report 7220537-X (Version None)
Quarter: 2011Q1

REPORT INFORMATION
  Report Type: 
  Country: None (occurrence: None)
  Receive Date: 20110111
  Receipt Date: 20110109
  Transmission Date: 20110831
  Serious: Yes (Other)
  Sender: FDA-Public Use
  Company Number: US-PFIZER INC-2011005341

PATIENT
  Sex: Female
  Weight: 62.132 kg

DRUGS (5)
  1. IBUPROFEN [Concomitant]
     Dosage: 800 MG, UNK
  2. CHANTIX [Suspect]
     Indication: SMOKING CESSATION THERAPY
     Dosage: 0.5 MG, 1X/DAY
     Route: 048
     Dates: start: 20110101, end: 20110109
  3. PROZAC [Interacting]
     Indication: BIPOLAR DISORDER
     Dosage: UNK
  4. KLONOPIN [Interacting]
     Indication: BIPOLAR DISORDER
     Dosage: UNK
  5. SEROQUEL [Interacting]
     Indication: BIPOLAR DISORDER
     Dosage: UNK

REACTIONS (6)
  - FEELING ABNORMAL [None]
  - STOMATITIS [None]
  - HOMICIDAL IDEATION [None]
  - PERSONALITY CHANGE [None]
  - ERYTHEMA [None]
  - DRUG INTERACTION [None]
